FAERS Safety Report 6114682-X (Version None)
Quarter: 2009Q1

REPORT INFORMATION
  Report Type: 
  Country: None (occurrence: None)
  Receive Date: 20090311
  Receipt Date: 20080602
  Transmission Date: 20090719
  Serious: Yes (Other)
  Sender: FDA-Public Use
  Company Number: US200801001129

PATIENT
  Age: 55 Year
  Sex: Female

DRUGS (3)
  1. GEMZAR [Suspect]
     Indication: PANCREATIC CARCINOMA
     Dosage: SEE IMAGE
     Dates: start: 20070101, end: 20070101
  2. GEMZAR [Suspect]
     Indication: PANCREATIC CARCINOMA
     Dosage: SEE IMAGE
     Dates: start: 20070101, end: 20080122
  3. CREON [Concomitant]

REACTIONS (4)
  - ALANINE AMINOTRANSFERASE INCREASED [None]
  - ASPARTATE AMINOTRANSFERASE INCREASED [None]
  - BLOOD ALKALINE PHOSPHATASE INCREASED [None]
  - DRY EYE [None]
